FAERS Safety Report 22120768 (Version 1)
Quarter: 2023Q1

REPORT INFORMATION
  Report Type: Spontaneous
  Country: DE (occurrence: DE)
  Receive Date: 20230321
  Receipt Date: 20230321
  Transmission Date: 20230418
  Serious: Yes (Hospitalization, Other)
  Sender: FDA-Public Use
  Company Number: DE-PEI-202300009085

PATIENT
  Age: 88 Year
  Sex: Female

DRUGS (1)
  1. FARICIMAB [Suspect]
     Active Substance: FARICIMAB
     Indication: Neovascular age-related macular degeneration
     Dosage: 1 DOSE
     Route: 065
     Dates: start: 20230109

REACTIONS (4)
  - Pancreatitis acute [Recovered/Resolved]
  - Norovirus infection [Recovered/Resolved]
  - Staphylococcal infection [Recovered/Resolved]
  - Vomiting [Unknown]

NARRATIVE: CASE EVENT DATE: 20230115
